FAERS Safety Report 6722116-7 (Version None)
Quarter: 2010Q2

REPORT INFORMATION
  Report Type: 
  Country: None (occurrence: None)
  Receive Date: 20100512
  Receipt Date: 20100428
  Transmission Date: 20101027
  Serious: Yes (Hospitalization)
  Sender: FDA-Public Use
  Company Number: FR-ELI_LILLY_AND_COMPANY-FR201004007676

PATIENT
  Sex: Male

DRUGS (6)
  1. PROZAC [Suspect]
     Indication: DEPRESSION
     Route: 048
  2. ZYPREXA [Suspect]
     Indication: SCHIZOPHRENIA
     Route: 048
  3. TERCIAN [Concomitant]
     Indication: PSYCHOTIC DISORDER
     Dosage: 100 MG, DAILY (1/D)
     Route: 048
  4. ATARAX [Concomitant]
     Indication: ANXIETY
     Route: 048
  5. MEDIATOR [Concomitant]
     Indication: DIABETES MELLITUS
     Dosage: 150 MG, DAILY (1/D)
     Route: 048
  6. ACTOS [Concomitant]
     Indication: DIABETES MELLITUS
     Dosage: 30 MG, DAILY (1/D)
     Route: 048

REACTIONS (2)
  - CEREBELLAR SYNDROME [None]
  - CONFUSIONAL STATE [None]
